FAERS Safety Report 23481403 (Version 2)
Quarter: 2024Q1

REPORT INFORMATION
  Report Type: Spontaneous
  Country: US (occurrence: US)
  Receive Date: 20240205
  Receipt Date: 20240226
  Transmission Date: 20240409
  Serious: No
  Sender: FDA-Public Use
  Company Number: US-E2BLSMVVAL-SPO/USA/24/0001729

PATIENT
  Sex: Female

DRUGS (1)
  1. SUMATRIPTAN SUCCINATE [Suspect]
     Active Substance: SUMATRIPTAN SUCCINATE
     Indication: Cluster headache
     Dosage: AUTO-INJECTION SYSTEM 6 MG/0.5 ML; COUNT (2 IN 1 CARTON)

REACTIONS (2)
  - Product dose omission issue [Unknown]
  - Poor quality device used [Unknown]
